FAERS Safety Report 23423885 (Version 1)
Quarter: 2024Q1

REPORT INFORMATION
  Report Type: Spontaneous
  Country: US (occurrence: US)
  Receive Date: 20240119
  Receipt Date: 20240119
  Transmission Date: 20240410
  Serious: No
  Sender: FDA-Public Use
  Company Number: US-SA-SAC20240116001159

PATIENT
  Age: 55 Year
  Sex: Female

DRUGS (9)
  1. DUPIXENT [Suspect]
     Active Substance: DUPILUMAB
     Indication: Hypereosinophilic syndrome
     Dosage: 600MG, 1X
     Route: 058
     Dates: start: 20240101, end: 20240101
  2. DUPIXENT [Suspect]
     Active Substance: DUPILUMAB
     Dosage: 300MG, QOW
     Route: 058
     Dates: start: 202401
  3. ESTRADIOL [Concomitant]
     Active Substance: ESTRADIOL
  4. PREDNISONE [Concomitant]
     Active Substance: PREDNISONE
  5. ALLEGRA [Concomitant]
     Active Substance: FEXOFENADINE HYDROCHLORIDE
  6. ATENOLOL [Concomitant]
     Active Substance: ATENOLOL
  7. BREO ELLIPTA [Concomitant]
     Active Substance: FLUTICASONE FUROATE\VILANTEROL TRIFENATATE
  8. SINGULAIR [Concomitant]
     Active Substance: MONTELUKAST SODIUM
  9. VENTOLIN [Concomitant]
     Active Substance: ALBUTEROL SULFATE

REACTIONS (4)
  - Atrophy [Unknown]
  - Lacrimation increased [Unknown]
  - Dry eye [Unknown]
  - Product use in unapproved indication [Unknown]

NARRATIVE: CASE EVENT DATE: 20240101
